FAERS Safety Report 15030714 (Version 18)
Quarter: 2021Q3

REPORT INFORMATION
  Report Type: Report from Study
  Country: PA (occurrence: PA)
  Receive Date: 20180619
  Receipt Date: 20210726
  Transmission Date: 20211014
  Serious: Yes (Hospitalization, Other)
  Sender: FDA-Public Use
  Company Number: PHHY2018PA024169

PATIENT
  Sex: Male
  Weight: 86.17 kg

DRUGS (5)
  1. GILENYA [Suspect]
     Active Substance: FINGOLIMOD HYDROCHLORIDE
     Indication: MULTIPLE SCLEROSIS
     Dosage: 0.5 MG, QD
     Route: 048
     Dates: start: 20180101
  2. EXFORGE [Suspect]
     Active Substance: AMLODIPINE BESYLATE\VALSARTAN
     Indication: MULTIPLE SCLEROSIS
     Dosage: 1 DF (160/5 MG), QD, STARTED 2 YEARS AGO
     Route: 065
     Dates: end: 20200828
  3. GILENYA [Suspect]
     Active Substance: FINGOLIMOD HYDROCHLORIDE
     Dosage: 0.5 MG, QD
     Route: 048
     Dates: start: 20180215
  4. EXFORGE [Suspect]
     Active Substance: AMLODIPINE BESYLATE\VALSARTAN
     Dosage: 1 DF (10/320 MG)
     Route: 065
  5. EXFORGE [Suspect]
     Active Substance: AMLODIPINE BESYLATE\VALSARTAN
     Indication: HYPERTENSION
     Dosage: 10/320 MG
     Route: 065
     Dates: start: 2017

REACTIONS (35)
  - Fibroma [Unknown]
  - Abdominal discomfort [Not Recovered/Not Resolved]
  - Treatment failure [Not Recovered/Not Resolved]
  - Hypoaesthesia [Not Recovered/Not Resolved]
  - Balance disorder [Unknown]
  - Coordination abnormal [Unknown]
  - Fall [Unknown]
  - Drug ineffective [Unknown]
  - Limb discomfort [Not Recovered/Not Resolved]
  - Gait inability [Unknown]
  - Tooth disorder [Unknown]
  - Tension [Unknown]
  - Blood triglycerides increased [Recovered/Resolved]
  - Feeling abnormal [Not Recovered/Not Resolved]
  - Colitis [Not Recovered/Not Resolved]
  - Vertigo [Unknown]
  - Gastrointestinal disorder [Not Recovered/Not Resolved]
  - Muscular weakness [Unknown]
  - Stress [Unknown]
  - Metatarsalgia [Unknown]
  - Contusion [Unknown]
  - Memory impairment [Unknown]
  - Fear [Unknown]
  - Nervousness [Not Recovered/Not Resolved]
  - Nephrolithiasis [Recovered/Resolved]
  - Dizziness [Not Recovered/Not Resolved]
  - Wound [Unknown]
  - Vision blurred [Unknown]
  - Product use in unapproved indication [Unknown]
  - Malaise [Not Recovered/Not Resolved]
  - Multiple sclerosis relapse [Recovering/Resolving]
  - Hypertension [Unknown]
  - Abdominal distension [Not Recovered/Not Resolved]
  - Muscle spasms [Not Recovered/Not Resolved]
  - Pain [Unknown]

NARRATIVE: CASE EVENT DATE: 2019
